FAERS Safety Report 7456339-9 (Version None)
Quarter: 2011Q2

REPORT INFORMATION
  Report Type: 
  Country: None (occurrence: None)
  Receive Date: 20110503
  Receipt Date: 20110426
  Transmission Date: 20111010
  Serious: Yes (Life-Threatening, Hospitalization)
  Sender: FDA-Public Use
  Company Number: FI-SANOFI-AVENTIS-2010SA048583

PATIENT
  Age: 62 Year
  Sex: Male

DRUGS (4)
  1. DIFORMIN [Suspect]
     Indication: TYPE 2 DIABETES MELLITUS
     Route: 048
     Dates: start: 19930101, end: 20100714
  2. PARA-TABS [Suspect]
     Route: 048
     Dates: start: 20100401, end: 20100714
  3. PANACOD [Suspect]
     Dosage: 1/2-1 TAB. 1-3 X A DAY
     Route: 048
     Dates: start: 20100401, end: 20100714
  4. AMARYL [Suspect]
     Indication: TYPE 2 DIABETES MELLITUS
     Route: 048
     Dates: start: 19930101, end: 20100714

REACTIONS (3)
  - HEPATIC NECROSIS [None]
  - HEPATITIS ACUTE [None]
  - HEPATIC FAILURE [None]
